FAERS Safety Report 18583373 (Version 1)
Quarter: 2020Q4

REPORT INFORMATION
  Report Type: Spontaneous
  Country: PK (occurrence: PK)
  Receive Date: 20201206
  Receipt Date: 20201206
  Transmission Date: 20210114
  Serious: Yes (Other)
  Sender: FDA-Public Use
  Company Number: PK-AMGEN-PAKSP2020021090

PATIENT
  Age: 21 Year
  Sex: Female
  Weight: 64 kg

DRUGS (10)
  1. CARA [CLOTRIMAZOLE] [Concomitant]
     Dosage: 20 MG, ONCE DAILY (IN THE MORNING)
  2. ENBREL [Suspect]
     Active Substance: ETANERCEPT
     Indication: JUVENILE IDIOPATHIC ARTHRITIS
     Dosage: 50 MILLIGRAM, QWK
     Route: 058
  3. PREDNISOLONE. [Concomitant]
     Active Substance: PREDNISOLONE
     Dosage: 7.5 MILLIGRAM, QD
  4. TRIHEMIC 600 MG [Concomitant]
     Dosage: 1 DOSAGE FORM, QD
  5. PREDNISOLONE. [Concomitant]
     Active Substance: PREDNISOLONE
     Dosage: 5 MG, ALTERNATE DAY
  6. HCQ [Concomitant]
     Active Substance: HYDROXYCHLOROQUINE SULFATE
     Dosage: 200 UNK, ONCE DAILY (IN THE MORNING)
  7. FAMOT [Concomitant]
     Dosage: 20 MG, ONCE DAILY (EVERY NIGHT)
  8. RABECID [Concomitant]
     Dosage: 20 MG, ONCE DAILY (IN THE MORNING)
  9. SALAZODINE [Concomitant]
     Dosage: 500 MILLIGRAM, BID
  10. CELECOXIB. [Concomitant]
     Active Substance: CELECOXIB
     Dosage: 200 MG, ONCE DAILY (IN THE MORNING)

REACTIONS (7)
  - Alopecia [Unknown]
  - Weight fluctuation [Unknown]
  - Pain [Recovering/Resolving]
  - Haematemesis [Unknown]
  - Dyspepsia [Recovering/Resolving]
  - Iron deficiency anaemia [Unknown]
  - Cough [Unknown]

NARRATIVE: CASE EVENT DATE: 20200120
